FAERS Safety Report 9693380 (Version 8)
Quarter: 2014Q4

REPORT INFORMATION
  Report Type: Spontaneous
  Country: CA (occurrence: CA)
  Receive Date: 20131118
  Receipt Date: 20141205
  Transmission Date: 20150529
  Serious: Yes (Other)
  Sender: FDA-Public Use
  Company Number: CA-GLAXOSMITHKLINE-A1039594A

PATIENT
  Age: 52 Year
  Sex: Female
  Weight: 108 kg

DRUGS (9)
  1. COVERSYL [Concomitant]
     Active Substance: PERINDOPRIL
  2. FUROSEMIDE. [Concomitant]
     Active Substance: FUROSEMIDE
  3. GLICAZIDE [Concomitant]
     Active Substance: GLICLAZIDE
  4. PLAQUENIL [Concomitant]
     Active Substance: HYDROXYCHLOROQUINE SULFATE
  5. OXYCODONE HYDROCHLORIDE. [Concomitant]
     Active Substance: OXYCODONE HYDROCHLORIDE
  6. PREDNISONE. [Concomitant]
     Active Substance: PREDNISONE
  7. BENLYSTA [Suspect]
     Active Substance: BELIMUMAB
     Indication: SYSTEMIC LUPUS ERYTHEMATOSUS
     Dosage: WKS 0, 2, 4 THEN EVERY 4 WKSDOSE OF BENLYSTA INCREASED TO 1045 MG INDICATED ON FOLLOW UP RECD. [...]
     Route: 042
     Dates: start: 20130826
  8. DIURETIC [Suspect]
     Active Substance: UNSPECIFIED INGREDIENT
     Indication: PRODUCT USED FOR UNKNOWN INDICATION
     Route: 065
  9. METFORMIN [Concomitant]
     Active Substance: METFORMIN HYDROCHLORIDE

REACTIONS (24)
  - Photophobia [Unknown]
  - Musculoskeletal stiffness [Recovering/Resolving]
  - Neuropathy peripheral [Not Recovered/Not Resolved]
  - Weight increased [Unknown]
  - Fluid retention [Not Recovered/Not Resolved]
  - Oedema peripheral [Unknown]
  - Electrolyte imbalance [Unknown]
  - Gastrooesophageal reflux disease [Not Recovered/Not Resolved]
  - Blood glucose increased [Not Recovered/Not Resolved]
  - Nausea [Unknown]
  - Pain in extremity [Unknown]
  - Stress [Unknown]
  - Drug effect decreased [Unknown]
  - Photophobia [Unknown]
  - Dry mouth [Not Recovered/Not Resolved]
  - Insomnia [Unknown]
  - Mobility decreased [Recovering/Resolving]
  - Lower respiratory tract infection [Unknown]
  - Throat irritation [Unknown]
  - Feeling abnormal [Unknown]
  - Muscle spasms [Unknown]
  - Pain [Unknown]
  - Headache [Recovering/Resolving]
  - Systemic lupus erythematosus [Unknown]

NARRATIVE: CASE EVENT DATE: 20130826
